FAERS Safety Report 4757930-0 (Version None)
Quarter: 2005Q3

REPORT INFORMATION
  Report Type: 
  Country: None (occurrence: None)
  Receive Date: 20050831
  Receipt Date: 20050805
  Transmission Date: 20060218
  Serious: Yes (Other)
  Sender: FDA-Public Use
  Company Number: GB-ABBOTT-05P-167-0307656-00

PATIENT
  Sex: Female

DRUGS (6)
  1. DEPAKOTE [Suspect]
     Indication: MOOD ALTERED
     Route: 048
     Dates: start: 20050720
  2. QUETIAPINE FUMARATE [Suspect]
     Indication: PSYCHOTIC DISORDER
     Route: 048
     Dates: start: 20050720
  3. LEVOTHYROXINE [Concomitant]
     Indication: HYPOTHYROIDISM
  4. LOSARTAN POTASSIUM [Concomitant]
     Indication: HYPERTENSION
  5. INSULIN GLARGINE [Concomitant]
     Indication: DIABETES MELLITUS
     Dates: start: 20050720
  6. INSULIN LISPRO [Concomitant]
     Indication: DIABETES MELLITUS

REACTIONS (2)
  - HOT FLUSH [None]
  - HYPOGLYCAEMIA [None]
